FAERS Safety Report 9840296 (Version 1)
Quarter: 2013Q4

REPORT INFORMATION
  Report Type: Spontaneous
  Country: US (occurrence: None)
  Receive Date: 20131223
  Receipt Date: 20131223
  Transmission Date: 20140711
  Serious: Yes (Other)
  Sender: FDA-Public Use
  Company Number: 219797LEO

PATIENT
  Age: 57 Year
  Sex: Female

DRUGS (3)
  1. PICATO [Suspect]
     Indication: ACTINIC KERATOSIS
     Dosage: (FOR 2 DAYS), OR LEG  APPLIED 3 WEEKS AGO
  2. MOBIC (MELOXICAM) [Concomitant]
  3. EVISTA (RALOXIFENE) [Concomitant]

REACTIONS (2)
  - Drug ineffective [None]
  - No adverse event [None]
